FAERS Safety Report 14112629 (Version 1)
Quarter: 2017Q4

REPORT INFORMATION
  Report Type: Report from Study
  Country: US (occurrence: US)
  Receive Date: 20171021
  Receipt Date: 20171021
  Transmission Date: 20180321
  Serious: No
  Sender: FDA-Public Use
  Company Number: PHEH2017US033601

PATIENT
  Sex: Male

DRUGS (1)
  1. COSENTYX [Suspect]
     Active Substance: SECUKINUMAB
     Indication: PSORIASIS
     Dosage: 300 MG, QMO
     Route: 058
     Dates: start: 20170316

REACTIONS (6)
  - Influenza [Unknown]
  - Nasopharyngitis [Unknown]
  - Infection [Unknown]
  - Decreased immune responsiveness [Unknown]
  - Malaise [Unknown]
  - Cough [Unknown]
